FAERS Safety Report 10831899 (Version 1)
Quarter: 2015Q1

REPORT INFORMATION
  Report Type: Spontaneous
  Country: US (occurrence: US)
  Receive Date: 20150219
  Receipt Date: 20150219
  Transmission Date: 20150721
  Serious: No
  Sender: FDA-Public Use
  Company Number: US-ZOGENIX, INC.-2015ZX000007

PATIENT
  Sex: Female
  Weight: 84.9 kg

DRUGS (8)
  1. UNSPECIFIED KNEE INJECTION [Concomitant]
     Indication: PRODUCT USED FOR UNKNOWN INDICATION
  2. WELLBUTRIN [Concomitant]
     Active Substance: BUPROPION HYDROCHLORIDE
     Indication: PRODUCT USED FOR UNKNOWN INDICATION
  3. UNSPECIFIED HIP INJECTION [Concomitant]
     Indication: PRODUCT USED FOR UNKNOWN INDICATION
  4. HYDROCODONE [Concomitant]
     Active Substance: HYDROCODONE
     Indication: BREAKTHROUGH PAIN
  5. MULTIVITAMIN [Concomitant]
     Active Substance: VITAMINS
     Indication: SUPPLEMENTATION THERAPY
  6. ZOHYDRO [Suspect]
     Active Substance: HYDROCODONE BITARTRATE
     Indication: PAIN
     Route: 048
     Dates: start: 2014, end: 20150102
  7. HORMONES [Concomitant]
     Active Substance: UNSPECIFIED INGREDIENT
     Indication: HORMONE REPLACEMENT THERAPY
  8. CALCIUM [Concomitant]
     Active Substance: CALCIUM
     Indication: SUPPLEMENTATION THERAPY

REACTIONS (7)
  - Pain [Not Recovered/Not Resolved]
  - Diarrhoea [Recovered/Resolved]
  - Vomiting [Recovered/Resolved]
  - Influenza like illness [Recovered/Resolved]
  - Chills [Recovered/Resolved]
  - Fall [Recovered/Resolved]
  - Gait disturbance [Not Recovered/Not Resolved]
